FAERS Safety Report 8141936-8 (Version None)
Quarter: 2012Q1

REPORT INFORMATION
  Report Type: 
  Country: None (occurrence: None)
  Receive Date: 20120216
  Receipt Date: 20110513
  Transmission Date: 20120608
  Serious: Yes (Other)
  Sender: FDA-Public Use
  Company Number: US-GLAXOSMITHKLINE-B0719344A

PATIENT
  Sex: Male
  Weight: 104.1 kg

DRUGS (7)
  1. VYTORIN [Concomitant]
  2. PREVACID [Concomitant]
  3. CELEBREX [Concomitant]
  4. DIOVAN [Concomitant]
  5. LYRICA [Concomitant]
  6. METFORMIN HCL [Concomitant]
  7. AVANDIA [Suspect]
     Indication: DIABETES MELLITUS
     Dosage: 4MG TWICE PER DAY
     Route: 048

REACTIONS (2)
  - CARDIOVASCULAR DISORDER [None]
  - TRANSIENT ISCHAEMIC ATTACK [None]
